FAERS Safety Report 6419130-8 (Version None)
Quarter: 2009Q4

REPORT INFORMATION
  Report Type: 
  Country: None (occurrence: None)
  Receive Date: 20091029
  Receipt Date: 20091005
  Transmission Date: 20100525
  Serious: No
  Sender: FDA-Public Use
  Company Number: US-ROCHE-660523

PATIENT
  Age: 68 Year
  Sex: Female

DRUGS (2)
  1. TAMIFLU [Suspect]
     Indication: INFLUENZA
     Dosage: MEDICATION ERROR
     Route: 048
     Dates: start: 20090905
  2. TAMIFLU [Suspect]
     Route: 048

REACTIONS (3)
  - COUGH [None]
  - DYSPHONIA [None]
  - EXPIRED DRUG ADMINISTERED [None]
